FAERS Safety Report 8905366 (Version 1)
Quarter: 2012Q4

REPORT INFORMATION
  Report Type: 
  Country: US (occurrence: US)
  Receive Date: 20121113
  Receipt Date: 20121113
  Transmission Date: 20130627
  Serious: Yes (Hospitalization)
  Sender: FDA-Public Use
  Company Number: US-ELI_LILLY_AND_COMPANY-US201211001753

PATIENT
  Sex: Female

DRUGS (3)
  1. HUMALOG LISPRO [Suspect]
     Indication: DIABETES MELLITUS
     Dosage: UNK, prn
     Dates: start: 2006
  2. METFORMIN [Concomitant]
     Dosage: 1000 mg, bid
  3. GLIPIZIDE [Concomitant]
     Dosage: 5 mg, bid

REACTIONS (7)
  - Thrombosis [Unknown]
  - Pulmonary thrombosis [Unknown]
  - Cardiac stress test [Unknown]
  - Fall [Unknown]
  - Pain in extremity [Unknown]
  - Joint range of motion decreased [Unknown]
  - Oedema peripheral [Unknown]
